FAERS Safety Report 7948714-0 (Version None)
Quarter: 2011Q4

REPORT INFORMATION
  Report Type: 
  Country: None (occurrence: None)
  Receive Date: 20111123
  Receipt Date: 20111108
  Transmission Date: 20120403
  Serious: Yes (Other)
  Sender: FDA-Public Use
  Company Number: DSU-2011-08404

PATIENT
  Sex: Female

DRUGS (4)
  1. OLMESARTAN MEDOXOMIL AND HYDROCHLOROTHIZIDE [Suspect]
     Indication: PRODUCT USED FOR UNKNOWN INDICATION
     Dosage: PER ORAL
     Route: 048
     Dates: start: 20100805
  2. OXYGEN (OXYGEN) (OXYGEN) [Concomitant]
  3. PREDNISONE [Suspect]
     Indication: PRODUCT USED FOR UNKNOWN INDICATION
  4. ANTIBIOTICS (ANTIBIOTICS) [Concomitant]

REACTIONS (1)
  - WEIGHT INCREASED [None]
